FAERS Safety Report 25080983 (Version 2)
Quarter: 2025Q1

REPORT INFORMATION
  Report Type: Spontaneous
  Country: SK (occurrence: SK)
  Receive Date: 20250315
  Receipt Date: 20250329
  Transmission Date: 20250409
  Serious: Yes (Other)
  Sender: ABBVIE
  Company Number: SK-JNJFOC-20250327618

PATIENT

DRUGS (2)
  1. IMBRUVICA [Suspect]
     Active Substance: IBRUTINIB
     Indication: Chronic lymphocytic leukaemia
     Dosage: 3 CYCLES (28-DAYS/CYCLE), FOLLOWED BY 12 CYCLES IN COMBINATION WITH  VENETOCLAX
     Route: 048
     Dates: start: 202406
  2. VENETOCLAX [Suspect]
     Active Substance: VENETOCLAX
     Indication: Chronic lymphocytic leukaemia
     Route: 048

REACTIONS (13)
  - Neutropenia [Unknown]
  - Hypertension [Unknown]
  - Atrial fibrillation [Unknown]
  - Pneumonia [Unknown]
  - Infection [Unknown]
  - Thrombocytopenia [Unknown]
  - Leukocytosis [Unknown]
  - Petechiae [Unknown]
  - Diarrhoea [Unknown]
  - Rash [Unknown]
  - Rash [Unknown]
  - Hyponatraemia [Unknown]
  - Haemoptysis [Unknown]
